FAERS Safety Report 6623373-8 (Version None)
Quarter: 2010Q1

REPORT INFORMATION
  Report Type: 
  Country: None (occurrence: None)
  Receive Date: 20100310
  Receipt Date: 20091203
  Transmission Date: 20100710
  Serious: Yes (Hospitalization)
  Sender: FDA-Public Use
  Company Number: US-BIOGENIDEC-2009BI039324

PATIENT
  Age: 40 Year
  Sex: Female
  Weight: 99 kg

DRUGS (2)
  1. AVONEX [Suspect]
     Indication: MULTIPLE SCLEROSIS
     Route: 030
     Dates: start: 19991101, end: 20030101
  2. AVONEX [Suspect]
     Route: 030
     Dates: start: 20030101, end: 20030101

REACTIONS (5)
  - GAIT DISTURBANCE [None]
  - HELICOBACTER INFECTION [None]
  - MENTAL IMPAIRMENT [None]
  - MULTIPLE SCLEROSIS RELAPSE [None]
  - VOMITING PROJECTILE [None]
